FAERS Safety Report 9378607 (Version 3)
Quarter: 2013Q4

REPORT INFORMATION
  Report Type: Spontaneous
  Country: JP (occurrence: None)
  Receive Date: 20130626
  Receipt Date: 20131220
  Transmission Date: 20140711
  Serious: Yes (Other)
  Sender: FDA-Public Use
  Company Number: 2013MPI00375

PATIENT
  Age: 51 Year
  Sex: Male

DRUGS (9)
  1. BRENTUXIMAB VEDOTIN (BRENTUXIMAB VEDOTIN) INJECTION [Suspect]
     Indication: HODGKIN^S DISEASE
     Dosage: Q21D, IV DRIP
     Dates: start: 20111017, end: 20120905
  2. FOLIAMIN (FOLIC ACID) [Concomitant]
  3. DEPAKENE-R (VALPROATE SODIUM) [Concomitant]
  4. LASIX (FUROSEMIDE SODIUM) [Concomitant]
  5. ACICLOVIR (ACICLOVIR SODIUM) [Concomitant]
  6. LOXOPROFEN [Concomitant]
  7. TEPRENONE (TEPRENONE) [Concomitant]
  8. MUCOPOLYSACCHARIDE POLYSULFURIC ACID ESTER (MUCOPOLYSACCHARIDE POLYSULFURIC ACID ESTER) [Concomitant]
  9. RESTAMIN (DIPHENHYDRAMINE) [Concomitant]

REACTIONS (3)
  - Myelodysplastic syndrome [None]
  - Meningitis aseptic [None]
  - Rash [None]
